FAERS Safety Report 7954050-9 (Version None)
Quarter: 2011Q4

REPORT INFORMATION
  Report Type: 
  Country: None (occurrence: None)
  Receive Date: 20111202
  Receipt Date: 20111129
  Transmission Date: 20120403
  Serious: Yes (Life-Threatening)
  Sender: FDA-Public Use
  Company Number: VE-ABBOTT-11P-178-0858230-00

PATIENT
  Sex: Female
  Weight: 70 kg

DRUGS (4)
  1. ISONIACIDE [Concomitant]
     Indication: OSTEOPOROSIS
     Dosage: DAILY
  2. HUMIRA [Suspect]
     Indication: RHEUMATOID ARTHRITIS
     Route: 058
     Dates: start: 20080405, end: 20110910
  3. CALCIUM [Concomitant]
     Indication: OSTEOPOROSIS
  4. ALENDRONATE SODIUM [Concomitant]
     Indication: OSTEOPOROSIS
     Dosage: ONCE A WEEK

REACTIONS (2)
  - TUBERCULIN TEST POSITIVE [None]
  - OEDEMA PERIPHERAL [None]
